FAERS Safety Report 10008234 (Version 3)
Quarter: 2014Q2

REPORT INFORMATION
  Report Type: Report from Study
  Country: US (occurrence: US)
  Receive Date: 20140313
  Receipt Date: 20140423
  Transmission Date: 20141212
  Serious: Yes (Hospitalization)
  Sender: FDA-Public Use
  Company Number: US-VERTEX PHARMACEUTICALS INC-2014-001165

PATIENT
  Age: 12 Year
  Sex: Female

DRUGS (12)
  1. VX-770 [Suspect]
     Indication: CYSTIC FIBROSIS
     Dosage: 150 MG, BID
     Route: 048
     Dates: start: 20120310
  2. AQUADEKS [Concomitant]
     Dosage: 1 TAB, QD
  3. VITAMIN D [Concomitant]
     Dosage: 1000 IU, QD
  4. ALBUTEROL [Concomitant]
     Dosage: 4 PUFFS, BID
     Route: 055
  5. FLOVENT [Concomitant]
     Dosage: 2 PUFFS, BID
     Route: 055
  6. PULMOZYME [Concomitant]
     Dosage: UNK, QD
  7. CREON [Concomitant]
     Dosage: 4 W/MEAL, 2-3 W/SNACK
  8. PREVACID [Concomitant]
     Dosage: 30 MG, QD
  9. CAYSTON [Concomitant]
     Dosage: QOM
  10. TOBRAMYCIN [Concomitant]
     Dosage: QOM
  11. ZITHROMAX [Concomitant]
     Dosage: 250 MG, TID
  12. ENSURE [Concomitant]
     Dosage: 3 CANS, UNK

REACTIONS (1)
  - Infective pulmonary exacerbation of cystic fibrosis [Recovered/Resolved]
